FAERS Safety Report 4562369-7 (Version None)
Quarter: 2005Q1

REPORT INFORMATION
  Report Type: 
  Country: None (occurrence: None)
  Receive Date: 20050127
  Receipt Date: 20050119
  Transmission Date: 20050727
  Serious: Yes (Other)
  Sender: FDA-Public Use
  Company Number: 200510476US

PATIENT
  Age: 65 Year
  Sex: Female

DRUGS (2)
  1. NASACORT AQ [Suspect]
     Dosage: DOSE: 2 SPRAYS PER NOSTRIL
  2. SYNTHROID [Concomitant]
     Indication: THYROID DISORDER
     Dosage: DOSE: UNK

REACTIONS (1)
  - BLOOD PRESSURE DIASTOLIC DECREASED [None]
